FAERS Safety Report 7689616-7 (Version None)
Quarter: 2011Q3

REPORT INFORMATION
  Report Type: 
  Country: None (occurrence: None)
  Receive Date: 20110817
  Receipt Date: 20110805
  Transmission Date: 20111222
  Serious: Yes (Other)
  Sender: FDA-Public Use
  Company Number: US-BAYER-2011-023041

PATIENT
  Age: 23 Year
  Sex: Female
  Weight: 55.329 kg

DRUGS (4)
  1. YASMIN [Suspect]
     Dosage: UNK
     Dates: start: 20060201, end: 20100301
  2. DROSPIRENONE AND ETHINYL ESTRADIOL [Suspect]
     Dosage: UNK
     Dates: start: 20060201, end: 20100301
  3. ACIPHEX [Concomitant]
     Dosage: 20 MG, UNK
  4. NEXIUM [Concomitant]

REACTIONS (3)
  - GALLBLADDER INJURY [None]
  - CHOLELITHIASIS [None]
  - CHOLECYSTITIS CHRONIC [None]
